FAERS Safety Report 16387849 (Version 1)
Quarter: 2019Q2

REPORT INFORMATION
  Report Type: Report from Study
  Country: None (occurrence: US)
  Receive Date: 20190604
  Receipt Date: 20190604
  Transmission Date: 20190711
  Serious: Yes (Hospitalization, Other)
  Sender: FDA-Public Use
  Company Number: US-ABBVIE-19K-163-2756557-00

PATIENT
  Age: 68 Year
  Sex: Female
  Weight: 77.18 kg

DRUGS (26)
  1. BREO ELLIPTA [Concomitant]
     Active Substance: FLUTICASONE FUROATE\VILANTEROL TRIFENATATE
     Indication: CHEMICAL BURN
  2. LEVOTHYROXINE. [Concomitant]
     Active Substance: LEVOTHYROXINE
     Indication: HYPOTHYROIDISM
  3. VENLAFAXINE [Concomitant]
     Active Substance: VENLAFAXINE HYDROCHLORIDE
     Indication: RENAL LITHIASIS PROPHYLAXIS
  4. RESTASIS [Concomitant]
     Active Substance: CYCLOSPORINE
     Indication: DRY EYE
  5. CPAP WITH OXYGEN [Concomitant]
     Indication: SLEEP APNOEA SYNDROME
  6. LEVOTHYROXINE. [Concomitant]
     Active Substance: LEVOTHYROXINE
     Indication: RENAL LITHIASIS PROPHYLAXIS
  7. LUMIGAN [Concomitant]
     Active Substance: BIMATOPROST
     Indication: GLAUCOMA
  8. LUMIGAN [Concomitant]
     Active Substance: BIMATOPROST
     Indication: RENAL LITHIASIS PROPHYLAXIS
  9. ZOCOR [Concomitant]
     Active Substance: SIMVASTATIN
     Indication: RENAL LITHIASIS PROPHYLAXIS
  10. HUMIRA [Suspect]
     Active Substance: ADALIMUMAB
     Indication: RHEUMATOID ARTHRITIS
     Route: 058
     Dates: start: 201801, end: 201809
  11. VENLAFAXINE [Concomitant]
     Active Substance: VENLAFAXINE HYDROCHLORIDE
     Indication: ANXIETY
  12. DORZOLAMIDE TIMOLOL [Concomitant]
     Active Substance: DORZOLAMIDE
     Indication: RENAL LITHIASIS PROPHYLAXIS
  13. VITAMIN D [Concomitant]
     Active Substance: VITAMIN D NOS
     Indication: RENAL LITHIASIS PROPHYLAXIS
  14. LOTEMAX [Concomitant]
     Active Substance: LOTEPREDNOL ETABONATE
     Indication: DRY EYE
  15. POTASSIUM [Concomitant]
     Active Substance: POTASSIUM
     Indication: HYPOKALAEMIA
  16. BREO ELLIPTA [Concomitant]
     Active Substance: FLUTICASONE FUROATE\VILANTEROL TRIFENATATE
     Indication: RENAL LITHIASIS PROPHYLAXIS
  17. METFORMIN [Concomitant]
     Active Substance: METFORMIN HYDROCHLORIDE
     Indication: DIABETES MELLITUS
  18. SULFASALAZINE. [Concomitant]
     Active Substance: SULFASALAZINE
     Indication: RHEUMATOID ARTHRITIS
  19. DORZOLAMIDE TIMOLOL [Concomitant]
     Active Substance: DORZOLAMIDE
     Indication: GLAUCOMA
  20. HUMIRA [Suspect]
     Active Substance: ADALIMUMAB
     Route: 058
     Dates: start: 201810, end: 201905
  21. VITAMIN D [Concomitant]
     Active Substance: VITAMIN D NOS
     Indication: VITAMIN D DEFICIENCY
  22. RESTASIS [Concomitant]
     Active Substance: CYCLOSPORINE
     Indication: RENAL LITHIASIS PROPHYLAXIS
  23. ZOCOR [Concomitant]
     Active Substance: SIMVASTATIN
     Indication: PRODUCT USED FOR UNKNOWN INDICATION
  24. POTASSIUM [Concomitant]
     Active Substance: POTASSIUM
     Indication: RENAL LITHIASIS PROPHYLAXIS
  25. SULFASALAZINE. [Concomitant]
     Active Substance: SULFASALAZINE
     Indication: RENAL LITHIASIS PROPHYLAXIS
  26. LOTEMAX [Concomitant]
     Active Substance: LOTEPREDNOL ETABONATE
     Indication: RENAL LITHIASIS PROPHYLAXIS

REACTIONS (4)
  - Meniscus injury [Recovered/Resolved]
  - Procedural pain [Recovering/Resolving]
  - Nerve compression [Recovered/Resolved]
  - Exostosis [Recovered/Resolved]

NARRATIVE: CASE EVENT DATE: 2018
